FAERS Safety Report 19470151 (Version 1)
Quarter: 2021Q2

REPORT INFORMATION
  Report Type: Spontaneous
  Country: GR (occurrence: GR)
  Receive Date: 20210629
  Receipt Date: 20210629
  Transmission Date: 20210717
  Serious: Yes (Other)
  Sender: FDA-Public Use
  Company Number: GR-SUN PHARMACEUTICAL INDUSTRIES LTD-2021R1-301514

PATIENT
  Age: 7 Month
  Sex: Female

DRUGS (3)
  1. ACETAZOLAMIDE. [Suspect]
     Active Substance: ACETAZOLAMIDE
     Dosage: 125 MILLIGRAM, TID
     Route: 048
  2. ACETAZOLAMIDE. [Suspect]
     Active Substance: ACETAZOLAMIDE
     Dosage: 125 MILLIGRAM, BID
     Route: 048
  3. ACETAZOLAMIDE. [Suspect]
     Active Substance: ACETAZOLAMIDE
     Indication: CYSTOID MACULAR OEDEMA
     Dosage: 250 MILLIGRAM, TID
     Route: 048

REACTIONS (5)
  - Headache [Recovered/Resolved]
  - Depression [Recovered/Resolved]
  - Narrow anterior chamber angle [Recovered/Resolved]
  - Dizziness [Recovered/Resolved]
  - Intraocular pressure increased [Recovered/Resolved]
